FAERS Safety Report 8593462-X (Version None)
Quarter: 2012Q3

REPORT INFORMATION
  Report Type: 
  Country: None (occurrence: None)
  Receive Date: 20120814
  Receipt Date: 20120731
  Transmission Date: 20120928
  Serious: No
  Sender: FDA-Public Use
  Company Number: GB-ASTRAZENECA-2012SE54400

PATIENT
  Age: 72 Year
  Sex: Female
  Weight: 64.4 kg

DRUGS (9)
  1. ALBUTEROL [Concomitant]
  2. SYMBICORT [Suspect]
     Indication: CHRONIC OBSTRUCTIVE PULMONARY DISEASE
     Dosage: 160/4.5 MCG, TWO TIMES A DAY
     Route: 055
  3. THYROID TAB [Concomitant]
  4. PLAVIX [Concomitant]
     Indication: STENT PLACEMENT
  5. PLAVIX [Concomitant]
     Indication: ANTICOAGULANT THERAPY
  6. SYMBICORT [Suspect]
     Indication: EMPHYSEMA
     Dosage: 160/4.5 MCG, TWO TIMES A DAY
     Route: 055
  7. LISINOPRIL [Suspect]
     Route: 048
  8. VENTOLIN [Concomitant]
  9. ASPIRIN [Concomitant]

REACTIONS (2)
  - OSTEOARTHRITIS [None]
  - BODY HEIGHT DECREASED [None]
